FAERS Safety Report 9027750 (Version 1)
Quarter: 2013Q1

REPORT INFORMATION
  Report Type: Spontaneous
  Country: US (occurrence: US)
  Receive Date: 20130123
  Receipt Date: 20130123
  Transmission Date: 20140127
  Serious: Yes (Hospitalization)
  Sender: FDA-Public Use
  Company Number: US-BAYER-2013-008152

PATIENT
  Sex: Male

DRUGS (1)
  1. KOGENATE FS [Suspect]
     Indication: HAEMOPHILIA
     Dosage: 4000 IU, UNK

REACTIONS (3)
  - Local swelling [Not Recovered/Not Resolved]
  - Deep vein thrombosis [Not Recovered/Not Resolved]
  - Transfusion [Not Recovered/Not Resolved]
